FAERS Safety Report 5860575-2 (Version None)
Quarter: 2008Q3

REPORT INFORMATION
  Report Type: 
  Country: None (occurrence: None)
  Receive Date: 20080827
  Receipt Date: 20070912
  Transmission Date: 20090109
  Serious: No
  Sender: FDA-Public Use
  Company Number: US-ABBOTT-07P-163-0416785-00

PATIENT
  Sex: Male
  Weight: 71.278 kg

DRUGS (7)
  1. COATED PDS [Suspect]
     Indication: BLOOD CHOLESTEROL ABNORMAL
     Dosage: 500 MG TABLET
     Route: 048
     Dates: start: 20070801
  2. COATED PDS [Suspect]
     Dosage: ONE PILL (WHITE)
     Route: 048
     Dates: start: 20070627, end: 20070801
  3. COATED PDS [Suspect]
     Dosage: THREE PILLS (WHITE)
     Route: 048
     Dates: start: 20040101, end: 20070626
  4. WARFARIN SODIUM [Concomitant]
     Indication: ATRIAL FIBRILLATION
     Route: 048
  5. DIGOXIN [Concomitant]
     Indication: ATRIAL FIBRILLATION
     Route: 048
  6. MULTI-VITAMIN [Concomitant]
     Indication: DRUG USE FOR UNKNOWN INDICATION
  7. FISH OIL [Concomitant]
     Indication: DRUG USE FOR UNKNOWN INDICATION

REACTIONS (1)
  - SEMEN DISCOLOURATION [None]
